FAERS Safety Report 6026254-6 (Version None)
Quarter: 2008Q4

REPORT INFORMATION
  Report Type: 
  Country: None (occurrence: None)
  Receive Date: 20081229
  Receipt Date: 20081215
  Transmission Date: 20090506
  Serious: Yes (Hospitalization)
  Sender: FDA-Public Use
  Company Number: 005247

PATIENT
  Age: 80 Year
  Sex: Male

DRUGS (6)
  1. PLETAL [Suspect]
     Dosage: ORAL
     Route: 048
     Dates: end: 20080101
  2. HORDAZOL (CILOSTAZOL) TABLET [Suspect]
     Dosage: ORAL
     Route: 048
     Dates: start: 20080101
  3. ALLOTOP (NIFEDIPINE) [Concomitant]
  4. LENDORM [Concomitant]
  5. DEPAS (ETIZOLAM) [Concomitant]
  6. MARZULENE (AZULENE SULFONATE SODIUM) [Concomitant]

REACTIONS (3)
  - AGRANULOCYTOSIS [None]
  - LEUKOPENIA [None]
  - PRODUCT QUALITY ISSUE [None]
